FAERS Safety Report 24697430 (Version 1)
Quarter: 2024Q4

REPORT INFORMATION
  Report Type: Report from Study
  Country: CO (occurrence: CO)
  Receive Date: 20241204
  Receipt Date: 20241204
  Transmission Date: 20250114
  Serious: Yes (Death, Hospitalization)
  Sender: BAYER HEALTHCARE PHARMACEUTICALS INC.
  Company Number: CO-BAYER-2024A171533

PATIENT
  Age: 68 Year
  Sex: Male

DRUGS (3)
  1. NUBEQA [Suspect]
     Active Substance: DAROLUTAMIDE
     Indication: Hormone-refractory prostate cancer
     Dosage: 300 MG, BID
     Route: 048
     Dates: start: 20240705, end: 20241014
  2. DIPYRONE [Suspect]
     Active Substance: DIPYRONE
     Dosage: UNK
  3. MORPHINE [Suspect]
     Active Substance: MORPHINE
     Dosage: UNK

REACTIONS (3)
  - Drug hypersensitivity [Fatal]
  - Pain [None]
  - Product use issue [None]

NARRATIVE: CASE EVENT DATE: 20240705
